FAERS Safety Report 10594403 (Version 1)
Quarter: 2014Q4

REPORT INFORMATION
  Report Type: Spontaneous
  Country: US (occurrence: US)
  Receive Date: 20141119
  Receipt Date: 20141119
  Transmission Date: 20150529
  Serious: No
  Sender: FDA-Public Use
  Company Number: US-ASTRAZENECA-2014SE85097

PATIENT
  Age: 71 Year
  Sex: Male

DRUGS (9)
  1. FLOMAX [Concomitant]
     Active Substance: TAMSULOSIN HYDROCHLORIDE
  2. CASODEX [Suspect]
     Active Substance: BICALUTAMIDE
     Indication: PROSTATIC SPECIFIC ANTIGEN INCREASED
     Route: 048
     Dates: end: 201409
  3. CALCIUM [Concomitant]
     Active Substance: CALCIUM
  4. LUPRON DEPOT [Suspect]
     Active Substance: LEUPROLIDE ACETATE
     Indication: PROSTATE CANCER
     Dosage: EVERY THREE MONTHS
     Route: 065
     Dates: start: 201303, end: 201306
  5. FOSAMAX [Concomitant]
     Active Substance: ALENDRONATE SODIUM
  6. LUPRON DEPOT [Suspect]
     Active Substance: LEUPROLIDE ACETATE
     Indication: PROSTATE CANCER
     Route: 065
     Dates: start: 2011, end: 20140206
  7. PROSCAR [Suspect]
     Active Substance: FINASTERIDE
     Indication: PROSTATOMEGALY
     Route: 065
     Dates: start: 2008, end: 201409
  8. VITAMIN D [Concomitant]
     Active Substance: CHOLECALCIFEROL
  9. AVODART [Concomitant]
     Active Substance: DUTASTERIDE

REACTIONS (5)
  - Constipation [Unknown]
  - Back pain [Unknown]
  - Coccydynia [Unknown]
  - Breast pain [Unknown]
  - Fatigue [Unknown]

NARRATIVE: CASE EVENT DATE: 2013
